FAERS Safety Report 7674446-2 (Version None)
Quarter: 2011Q3

REPORT INFORMATION
  Report Type: 
  Country: None (occurrence: None)
  Receive Date: 20110810
  Receipt Date: 20110805
  Transmission Date: 20111222
  Serious: Yes (Hospitalization, Other)
  Sender: FDA-Public Use
  Company Number: GB-ROXANE LABORATORIES, INC.-2011-RO-01114RO

PATIENT
  Age: 26 Year
  Sex: Female

DRUGS (7)
  1. AZATHIOPRINE [Suspect]
     Indication: CROHN'S DISEASE
     Dosage: 75 MG
  2. PREDNISOLONE [Suspect]
     Indication: CROHN'S DISEASE
     Dosage: 5 MG
  3. MESALAMINE [Suspect]
     Indication: CROHN'S DISEASE
     Dosage: 1.2 MG
  4. ALENDRONATE SODIUM [Suspect]
     Indication: OSTEOPOROSIS
  5. MALARONE [Suspect]
     Indication: MALARIA PROPHYLAXIS
  6. VITAMIN D [Suspect]
     Indication: OSTEOPOROSIS
  7. CALCIUM CARBONATE [Suspect]
     Indication: OSTEOPOROSIS

REACTIONS (6)
  - NORMOCHROMIC NORMOCYTIC ANAEMIA [None]
  - CYTOMEGALOVIRUS COLITIS [None]
  - CROHN'S DISEASE [None]
  - ABORTION MISSED [None]
  - TYPHUS [None]
  - CLOSTRIDIUM TEST POSITIVE [None]
